FAERS Safety Report 10525535 (Version 1)
Quarter: 2014Q4

REPORT INFORMATION
  Report Type: Spontaneous
  Country: US (occurrence: US)
  Receive Date: 20141017
  Receipt Date: 20141017
  Transmission Date: 20150528
  Serious: No
  Sender: FDA-Public Use
  Company Number: US-EISAI MEDICAL RESEARCH-E3810-06859-SPO-US

PATIENT
  Age: 32 Year
  Sex: Female

DRUGS (5)
  1. AMOXICILLIN. [Concomitant]
     Active Substance: AMOXICILLIN
     Dosage: UNKNOWN
     Dates: start: 20140107
  2. ACIPHEX [Suspect]
     Active Substance: RABEPRAZOLE SODIUM
     Indication: HELICOBACTER INFECTION
     Dates: start: 20140107
  3. AMOXICILLIN. [Concomitant]
     Active Substance: AMOXICILLIN
     Indication: HELICOBACTER INFECTION
     Dosage: UNKNOWN
     Dates: start: 20140107
  4. MYCOBUTIN [Concomitant]
     Active Substance: RIFABUTIN
     Indication: HELICOBACTER INFECTION
     Dosage: UNKNOWN
     Dates: start: 20140107
  5. MYCOBUTIN [Concomitant]
     Active Substance: RIFABUTIN
     Dosage: UNKNOWN
     Dates: start: 20140107

REACTIONS (1)
  - Rash [Not Recovered/Not Resolved]

NARRATIVE: CASE EVENT DATE: 20140108
